FAERS Safety Report 7430885-6 (Version None)
Quarter: 2011Q2

REPORT INFORMATION
  Report Type: 
  Country: None (occurrence: None)
  Receive Date: 20110421
  Receipt Date: 20110419
  Transmission Date: 20111010
  Serious: Yes (Hospitalization)
  Sender: FDA-Public Use
  Company Number: US-B.I. PHARMACEUTICALS,INC./RIDGEFIELD-2011-BP-07977BP

PATIENT
  Sex: Female

DRUGS (9)
  1. DIOVAN [Concomitant]
  2. PRADAXA [Suspect]
     Indication: CEREBROVASCULAR ACCIDENT PROPHYLAXIS
  3. CALCIUM [Concomitant]
  4. ACTONEL [Concomitant]
  5. METOPROLOL TARTRATE [Concomitant]
  6. MULTI-VITAMIN [Concomitant]
  7. PRADAXA [Suspect]
     Indication: ATRIAL FIBRILLATION
     Dosage: 300 MG
     Route: 048
     Dates: start: 20101101
  8. FERROUS SULFATE TAB [Concomitant]
  9. LIPITOR [Concomitant]

REACTIONS (2)
  - FALL [None]
  - MULTIPLE FRACTURES [None]
